FAERS Safety Report 17439339 (Version 4)
Quarter: 2020Q2

REPORT INFORMATION
  Report Type: Report from Study
  Country: US (occurrence: US)
  Receive Date: 20200220
  Receipt Date: 20200504
  Transmission Date: 20200713
  Serious: Yes (Other)
  Sender: FDA-Public Use
  Company Number: NVSC2020US047208

PATIENT
  Age: 78 Year
  Sex: Male

DRUGS (4)
  1. ENTRESTO [Suspect]
     Active Substance: SACUBITRIL\VALSARTAN
     Dosage: 1 DF (26/24 MG)
     Route: 048
  2. ENTRESTO [Suspect]
     Active Substance: SACUBITRIL\VALSARTAN
     Dosage: 1 DF, BID (51/49 MG)
     Route: 048
  3. CARVEDILOL. [Suspect]
     Active Substance: CARVEDILOL
     Indication: EJECTION FRACTION ABNORMAL
     Dosage: UNK
     Route: 065
  4. ENTRESTO [Suspect]
     Active Substance: SACUBITRIL\VALSARTAN
     Indication: PRODUCT USED FOR UNKNOWN INDICATION
     Dosage: 50 MG, TID (ONE IN MORINING AND TWO AT NIGHT)
     Route: 048

REACTIONS (12)
  - Atrial fibrillation [Unknown]
  - Cardiac dysfunction [Unknown]
  - Drug ineffective [Not Recovered/Not Resolved]
  - Dysphonia [Unknown]
  - Amnesia [Unknown]
  - Decreased activity [Unknown]
  - Asthenia [Unknown]
  - Product dose omission [Unknown]
  - Throat clearing [Recovering/Resolving]
  - Gait disturbance [Unknown]
  - Fatigue [Not Recovered/Not Resolved]
  - Cough [Unknown]

NARRATIVE: CASE EVENT DATE: 20200212
